FAERS Safety Report 8933782 (Version 1)
Quarter: 2012Q4

REPORT INFORMATION
  Report Type: 
  Country: BE (occurrence: BE)
  Receive Date: 20121129
  Receipt Date: 20121129
  Transmission Date: 20130627
  Serious: Yes (Other)
  Sender: FDA-Public Use
  Company Number: BE-JHP PHARMACEUTICALS, LLC-JHP201200545

PATIENT
  Age: 46 Year
  Sex: Female

DRUGS (2)
  1. DELESTROGEN [Suspect]
     Indication: HORMONE THERAPY
     Dosage: 2 mg, daily
     Route: 048
  2. CYPROTERONE ACETATE [Concomitant]
     Dosage: 50-100 mg/day

REACTIONS (2)
  - Peripheral arterial occlusive disease [Unknown]
  - Off label use [None]
